FAERS Safety Report 4270899-0 (Version None)
Quarter: 2004Q1

REPORT INFORMATION
  Report Type: 
  Country: None (occurrence: None)
  Receive Date: 20040113
  Receipt Date: 20031126
  Transmission Date: 20041129
  Serious: Yes (Hospitalization, Other)
  Sender: FDA-Public Use
  Company Number: 2003IC000558

PATIENT
  Age: 61 Year
  Sex: Female

DRUGS (2)
  1. FLUOROURACIL [Suspect]
     Indication: COLON CANCER
     Dosage: 840 MG; DAILY; INTRAVENOUS
     Route: 042
     Dates: start: 20030626, end: 20030710
  2. ISOVORIN [Suspect]
     Indication: COLON CANCER
     Dosage: 350 MG; DAILY; INTRAVENOUS
     Route: 042
     Dates: start: 20030626, end: 20030710

REACTIONS (16)
  - ANOREXIA [None]
  - DERMATITIS EXFOLIATIVE [None]
  - DIARRHOEA [None]
  - DISSEMINATED INTRAVASCULAR COAGULATION [None]
  - ERYTHEMA [None]
  - HYPERGLYCAEMIA [None]
  - INJECTION SITE HAEMORRHAGE [None]
  - LEUKOPENIA [None]
  - MALAISE [None]
  - NAUSEA [None]
  - PALMAR ERYTHEMA [None]
  - PYREXIA [None]
  - SHOCK [None]
  - STOMATITIS [None]
  - UPPER GASTROINTESTINAL HAEMORRHAGE [None]
  - VENTRICULAR TACHYCARDIA [None]
